FAERS Safety Report 25473337 (Version 1)
Quarter: 2025Q2

REPORT INFORMATION
  Report Type: Spontaneous
  Country: CL (occurrence: CL)
  Receive Date: 20250624
  Receipt Date: 20250624
  Transmission Date: 20250717
  Serious: Yes (Other)
  Sender: PFIZER
  Company Number: CL-PFIZER INC-PV202500074092

PATIENT
  Age: 64 Year
  Sex: Male

DRUGS (7)
  1. AXITINIB [Suspect]
     Active Substance: AXITINIB
     Indication: Clear cell renal cell carcinoma
     Dosage: 5 MG, 2X/DAY
     Route: 048
     Dates: start: 20220503
  2. SUTENT [Suspect]
     Active Substance: SUNITINIB MALATE
     Indication: Clear cell renal cell carcinoma
  3. SUTENT [Suspect]
     Active Substance: SUNITINIB MALATE
     Dosage: INTERMITTENT DOSES (EVERY OTHER DAY)
  4. SUTENT [Suspect]
     Active Substance: SUNITINIB MALATE
  5. PEMBROLIZUMAB [Concomitant]
     Active Substance: PEMBROLIZUMAB
     Dosage: 200 MG EV EVERY 21 DAYS
     Dates: start: 20220503
  6. PEMBROLIZUMAB [Concomitant]
     Active Substance: PEMBROLIZUMAB
     Dosage: 200 MG EVERY 21 DAYS FOR 3 CYCLES
     Route: 042
  7. PEMBROLIZUMAB [Concomitant]
     Active Substance: PEMBROLIZUMAB
     Dosage: 200 MG EVERY 21 DAYS FOR 3 CYCLES
     Route: 042

REACTIONS (7)
  - Hepatitis [Unknown]
  - Clear cell renal cell carcinoma [Unknown]
  - Malignant neoplasm progression [Unknown]
  - Metastases to lung [Unknown]
  - Hepatic cyst [Unknown]
  - Off label use [Unknown]
  - Off label use [Unknown]

NARRATIVE: CASE EVENT DATE: 20220503
